FAERS Safety Report 5350982-9 (Version None)
Quarter: 2007Q2

REPORT INFORMATION
  Report Type: 
  Country: None (occurrence: None)
  Receive Date: 20070608
  Receipt Date: 20070607
  Transmission Date: 20071010
  Serious: Yes (Death)
  Sender: FDA-Public Use
  Company Number: JP-ASTRAZENECA-2007AP01158

PATIENT
  Age: 78 Year
  Sex: Male

DRUGS (3)
  1. CASODEX [Suspect]
     Indication: PROSTATE CANCER
     Route: 048
     Dates: start: 20061030
  2. ZOLADEX [Suspect]
     Indication: PROSTATE CANCER
     Route: 058
     Dates: start: 20061110
  3. URIEF [Concomitant]
     Route: 048
     Dates: start: 20060620

REACTIONS (3)
  - ASTHENIA [None]
  - HYPONATRAEMIA [None]
  - PNEUMONIA [None]
